FAERS Safety Report 8862475 (Version 1)
Quarter: 2012Q4

REPORT INFORMATION
  Report Type: 
  Country: US (occurrence: US)
  Receive Date: 20121026
  Receipt Date: 20121026
  Transmission Date: 20130627
  Serious: No
  Sender: FDA-Public Use
  Company Number: US-ALLERGAN-1202735US

PATIENT
  Age: 72 Year
  Sex: Female

DRUGS (1)
  1. ALPHAGAN [Suspect]
     Indication: GLAUCOMA
     Dosage: 1 drop to each eye, twice per day
     Route: 047
     Dates: start: 2011, end: 2011

REACTIONS (4)
  - Erythema of eyelid [Recovering/Resolving]
  - Eye pruritus [Recovering/Resolving]
  - Dry eye [Recovering/Resolving]
  - Drug ineffective [Unknown]
